FAERS Safety Report 5248673-8 (Version None)
Quarter: 2007Q1

REPORT INFORMATION
  Report Type: 
  Country: None (occurrence: None)
  Receive Date: 20070226
  Receipt Date: 20070226
  Transmission Date: 20070707
  Serious: Yes (Other)
  Sender: FDA-Public Use
  Company Number: None

PATIENT
  Age: 30 Year
  Sex: Female
  Weight: 62.1428 kg

DRUGS (1)
  1. LIPITOR [Suspect]
     Indication: HYPERLIPIDAEMIA
     Dosage: 1 TABLET QD PO
     Route: 048
     Dates: start: 20000102, end: 20050702

REACTIONS (10)
  - ARTHRITIS [None]
  - ERYTHEMA [None]
  - MOUTH ULCERATION [None]
  - MUSCULAR WEAKNESS [None]
  - MYALGIA [None]
  - PAIN [None]
  - PERICARDITIS [None]
  - PHOTOSENSITIVITY REACTION [None]
  - RENAL FAILURE [None]
  - THROMBOCYTOPENIA [None]
